FAERS Safety Report 11886309 (Version 1)
Quarter: 2016Q1

REPORT INFORMATION
  Report Type: Spontaneous
  Country: US (occurrence: US)
  Receive Date: 20160104
  Receipt Date: 20160104
  Transmission Date: 20160526
  Serious: Yes (Other)
  Sender: FDA-Public Use
  Company Number: US-IPCA LABORATORIES LIMITED-IPC201512-000909

PATIENT
  Sex: Male

DRUGS (1)
  1. WARFARIN [Suspect]
     Active Substance: WARFARIN
     Indication: SURGERY

REACTIONS (3)
  - Haematoma [Recovered/Resolved]
  - Carpal tunnel syndrome [Recovered/Resolved]
  - International normalised ratio increased [Unknown]
